FAERS Safety Report 9083046 (Version 1)
Quarter: 2013Q1

REPORT INFORMATION
  Report Type: Report from Study
  Country: US (occurrence: US)
  Receive Date: 20130131
  Receipt Date: 20130131
  Transmission Date: 20140127
  Serious: No
  Sender: FDA-Public Use
  Company Number: US-ABBOTT-12P-163-0986750-00

PATIENT
  Age: 38 Year
  Sex: Female

DRUGS (3)
  1. HUMIRA [Suspect]
     Indication: CROHN^S DISEASE
     Dates: start: 20120620
  2. CLONAZEPAM [Concomitant]
     Indication: ANXIETY
     Dosage: 1 MG, ONE IN AM AND 1/2 AT NIGHT
  3. IBUPROFEN [Concomitant]
     Indication: CROHN^S DISEASE
     Dosage: USED WHEN WORKING

REACTIONS (5)
  - Rash [Not Recovered/Not Resolved]
  - Hypoaesthesia [Not Recovered/Not Resolved]
  - Hyperhidrosis [Not Recovered/Not Resolved]
  - Skin discomfort [Not Recovered/Not Resolved]
  - Skin fissures [Not Recovered/Not Resolved]
